FAERS Safety Report 17489721 (Version 1)
Quarter: 2020Q1

REPORT INFORMATION
  Report Type: Spontaneous
  Country: US (occurrence: US)
  Receive Date: 20200303
  Receipt Date: 20200303
  Transmission Date: 20200409
  Serious: Yes (Hospitalization, Other)
  Sender: FDA-Public Use
  Company Number: US-COOPERSURGICAL, INC.-US-2020CPS000584

PATIENT
  Age: 26 Year
  Sex: Female

DRUGS (1)
  1. PARAGARD T 380A [Suspect]
     Active Substance: COPPER
     Indication: CONTRACEPTION
     Dosage: UNK
     Route: 015
     Dates: start: 201208, end: 20190702

REACTIONS (12)
  - Ovarian cyst [Recovering/Resolving]
  - Menorrhagia [Recovered/Resolved]
  - General physical health deterioration [Not Recovered/Not Resolved]
  - Iron deficiency anaemia [Recovered/Resolved]
  - Hypoglycaemia [Recovering/Resolving]
  - Acne [Recovered/Resolved with Sequelae]
  - Device toxicity [Not Recovered/Not Resolved]
  - Palpitations [Recovering/Resolving]
  - Panic attack [Recovering/Resolving]
  - Alopecia [Recovered/Resolved]
  - Adverse event [Not Recovered/Not Resolved]
  - Menstruation irregular [Not Recovered/Not Resolved]

NARRATIVE: CASE EVENT DATE: 201209
